FAERS Safety Report 14806591 (Version 1)
Quarter: 2018Q2

REPORT INFORMATION
  Report Type: Spontaneous
  Country: US (occurrence: US)
  Receive Date: 20180425
  Receipt Date: 20180425
  Transmission Date: 20180711
  Serious: No
  Sender: FDA-Public Use
  Company Number: US-ROCHE-2048294

PATIENT
  Sex: Male

DRUGS (2)
  1. GABAPENTIN. [Concomitant]
     Active Substance: GABAPENTIN
     Indication: NEUROPATHY PERIPHERAL
     Route: 037
  2. OCREVUS [Suspect]
     Active Substance: OCRELIZUMAB
     Indication: PROGRESSIVE MULTIPLE SCLEROSIS
     Route: 042
     Dates: start: 201710

REACTIONS (2)
  - Muscle spasms [Not Recovered/Not Resolved]
  - Coccydynia [Not Recovered/Not Resolved]
